FAERS Safety Report 6842407-9 (Version None)
Quarter: 2010Q3

REPORT INFORMATION
  Report Type: 
  Country: None (occurrence: None)
  Receive Date: 20100714
  Receipt Date: 20070726
  Transmission Date: 20110219
  Serious: Yes (Other)
  Sender: FDA-Public Use
  Company Number: US-PFIZER INC-2007063040

PATIENT
  Sex: Female
  Weight: 75.454 kg

DRUGS (10)
  1. CHANTIX [Suspect]
     Indication: SMOKING CESSATION THERAPY
     Dates: start: 20070715, end: 20070722
  2. CELEXA [Concomitant]
  3. METHOTREXATE [Concomitant]
     Route: 042
  4. INDERAL [Concomitant]
     Route: 042
  5. FOLIC ACID [Concomitant]
  6. VITAMIN B COMPLEX CAP [Concomitant]
  7. VITAMIN B-12 [Concomitant]
  8. MELOXICAM [Concomitant]
  9. ESTRADIOL [Concomitant]
  10. TRAZODONE HYDROCHLORIDE [Concomitant]

REACTIONS (2)
  - CONVULSION [None]
  - DISSOCIATION [None]
